FAERS Safety Report 9617838 (Version 5)
Quarter: 2014Q1

REPORT INFORMATION
  Report Type: Report from Study
  Country: JP (occurrence: JP)
  Receive Date: 20131011
  Receipt Date: 20140307
  Transmission Date: 20141002
  Serious: Yes (Death, Other)
  Sender: FDA-Public Use
  Company Number: JP-ABBVIE-13P-087-1156366-00

PATIENT
  Age: 80 Year
  Sex: Female

DRUGS (15)
  1. HUMIRA [Suspect]
     Indication: BEHCET^S SYNDROME
     Route: 058
     Dates: start: 20130830, end: 20130830
  2. HUMIRA [Suspect]
     Dates: start: 20130913, end: 20130913
  3. ASPIRIN [Concomitant]
     Indication: PRODUCT USED FOR UNKNOWN INDICATION
     Route: 048
     Dates: start: 20081030, end: 20130919
  4. LOPERAMIDE HYDROCHLORIDE [Concomitant]
     Indication: DIARRHOEA
     Route: 048
     Dates: start: 20130511, end: 20130919
  5. LANSOPRAZOLE [Concomitant]
     Indication: ABDOMINAL PAIN UPPER
     Route: 048
     Dates: start: 20121119, end: 20130919
  6. MESALAZINE [Concomitant]
     Indication: BEHCET^S SYNDROME
     Route: 048
     Dates: start: 20120808, end: 20130919
  7. COLCHICINE [Concomitant]
     Indication: BEHCET^S SYNDROME
     Route: 048
     Dates: start: 20121119, end: 20130919
  8. MIRTAZAPINE [Concomitant]
     Indication: ANXIETY
     Route: 048
     Dates: start: 20121119, end: 20130919
  9. HERBAL MEDICINE (DAIKENCHUTO) [Concomitant]
     Indication: ABDOMINAL DISTENSION
     Route: 048
     Dates: start: 20130220, end: 20130919
  10. HYDROCORTISONE SODIUM SUCCINATE [Concomitant]
     Indication: PYREXIA
     Dates: start: 20130831, end: 20130831
  11. HYDROCORTISONE SODIUM SUCCINATE [Concomitant]
     Dates: start: 20130902, end: 20130902
  12. HYDROCORTISONE SODIUM SUCCINATE [Concomitant]
     Dates: start: 20130909, end: 20130909
  13. HYDROCORTISONE SODIUM SUCCINATE [Concomitant]
     Dates: start: 20130911, end: 20130911
  14. HYDROCORTISONE SODIUM SUCCINATE [Concomitant]
     Dates: start: 20130912, end: 20130912
  15. HYDROCORTISONE SODIUM SUCCINATE [Concomitant]
     Dates: start: 20130913, end: 20130913

REACTIONS (8)
  - Sepsis [Fatal]
  - Urinary tract infection [Fatal]
  - Candida infection [Unknown]
  - Malnutrition [Unknown]
  - Pyrexia [Unknown]
  - General physical health deterioration [Unknown]
  - Urinary tract infection [Unknown]
  - Device related infection [Unknown]
